FAERS Safety Report 4673346-X (Version None)
Quarter: 2005Q2

REPORT INFORMATION
  Report Type: 
  Country: None (occurrence: None)
  Receive Date: 20050523
  Receipt Date: 20050510
  Transmission Date: 20051028
  Serious: Yes (Hospitalization)
  Sender: FDA-Public Use
  Company Number: GRP05000098

PATIENT
  Age: 59 Year
  Sex: Male

DRUGS (3)
  1. ACTONEL [Suspect]
     Indication: OSTEOPOROSIS
     Dosage: 5 MG, 1/DAY, ORAL
     Route: 048
     Dates: start: 20010403, end: 20040316
  2. CALCIMAGON-D3             (COLECALCIFEROL, CALCIUM CARBONATE) [Concomitant]
  3. OSSIPPLEX-SLOW RELEASE             (SODIUM FLUORIDE, ASCORBIC ACID) [Concomitant]

REACTIONS (2)
  - ARTHRALGIA [None]
  - OSTEONECROSIS [None]
